FAERS Safety Report 9833426 (Version 1)
Quarter: 2014Q1

REPORT INFORMATION
  Report Type: Spontaneous
  Country: FR (occurrence: FR)
  Receive Date: 20140121
  Receipt Date: 20140121
  Transmission Date: 20141002
  Serious: Yes (Death)
  Sender: FDA-Public Use
  Company Number: FR-ROCHE-1336278

PATIENT
  Age: 64 Year
  Sex: Female

DRUGS (4)
  1. ZELBORAF [Suspect]
     Indication: PRODUCT USED FOR UNKNOWN INDICATION
     Route: 065
  2. LEVOTHYROX [Concomitant]
  3. ALPRAZOLAM [Concomitant]
  4. ESOMEPRAZOLE [Concomitant]

REACTIONS (1)
  - Death [Fatal]
